FAERS Safety Report 5040828-0 (Version None)
Quarter: 2006Q2

REPORT INFORMATION
  Report Type: 
  Country: None (occurrence: None)
  Receive Date: 20060629
  Receipt Date: 20060629
  Transmission Date: 20061013
  Serious: Yes (Other)
  Sender: FDA-Public Use
  Company Number: None

PATIENT
  Age: 66 Year
  Sex: Female
  Weight: 145 kg

DRUGS (5)
  1. VANCOMYCIN [Suspect]
     Indication: STAPHYLOCOCCAL INFECTION
     Dosage: 1800 MG Q 48 HOURS IV
     Route: 042
     Dates: start: 20060530, end: 20060614
  2. CEFEPIME [Concomitant]
  3. PRIMAXIN [Concomitant]
  4. DAPTOMYCIN [Concomitant]
  5. LEVAQUIN [Concomitant]

REACTIONS (2)
  - BLOOD CREATININE INCREASED [None]
  - EOSINOPHILIA [None]
